FAERS Safety Report 21215362 (Version 1)
Quarter: 2022Q3

REPORT INFORMATION
  Report Type: 
  Country: None (occurrence: None)
  Receive Date: 20220816
  Receipt Date: 20220816
  Transmission Date: 20221027
  Serious: No
  Sender: FDA-Public Use
  Company Number: None

PATIENT
  Age: 25 Year
  Sex: Female

DRUGS (1)
  1. MYORISAN [Suspect]
     Active Substance: ISOTRETINOIN

REACTIONS (6)
  - Myalgia [Unknown]
  - Vision blurred [Unknown]
  - Night blindness [Unknown]
  - Photosensitivity reaction [Unknown]
  - Dry skin [Unknown]
  - Product dose omission issue [Recovered/Resolved]
